FAERS Safety Report 23104673 (Version 1)
Quarter: 2023Q4

REPORT INFORMATION
  Report Type: Report from Study
  Country: US (occurrence: US)
  Receive Date: 20231025
  Receipt Date: 20231025
  Transmission Date: 20240110
  Serious: Yes (Other)
  Sender: FDA-Public Use
  Company Number: US-JNJFOC-20231043717

PATIENT
  Age: 43 Year
  Sex: Female

DRUGS (1)
  1. SPRAVATO [Suspect]
     Active Substance: ESKETAMINE
     Indication: Depression
     Dosage: ^84 MG, 63 TOTAL DOSES^
     Dates: start: 20200117, end: 20230810

REACTIONS (2)
  - Liposuction [Recovered/Resolved]
  - Abdominoplasty [Recovered/Resolved]

NARRATIVE: CASE EVENT DATE: 20231016
